FAERS Safety Report 7213161-6 (Version None)
Quarter: 2011Q1

REPORT INFORMATION
  Report Type: 
  Country: None (occurrence: None)
  Receive Date: 20110106
  Receipt Date: 20110105
  Transmission Date: 20110831
  Serious: Yes (Death, Hospitalization)
  Sender: FDA-Public Use
  Company Number: US-AMGEN-USASP2010009849

PATIENT

DRUGS (6)
  1. NPLATE [Suspect]
     Indication: IDIOPATHIC THROMBOCYTOPENIC PURPURA
     Dosage: 100 A?G, ONE TIME DOSE
     Route: 058
     Dates: start: 20100820, end: 20100820
  2. DOXYCYCLINE [Concomitant]
     Dosage: 100 MG, BID
     Route: 048
  3. IMMUNOGLOBULINS [Concomitant]
  4. CORTICOSTEROIDS [Concomitant]
  5. PLAQUENIL [Concomitant]
     Dosage: 200 MG, BID
     Route: 048
  6. MELOXICAM [Concomitant]
     Dosage: 15 MG, QD

REACTIONS (8)
  - SUBDURAL HAEMATOMA [None]
  - CEREBROVASCULAR ACCIDENT [None]
  - DIABETES INSIPIDUS [None]
  - INTRACRANIAL PRESSURE INCREASED [None]
  - GRAND MAL CONVULSION [None]
  - SUBARACHNOID HAEMORRHAGE [None]
  - HYPOTENSION [None]
  - BRAIN HERNIATION [None]
